FAERS Safety Report 8230826-8 (Version None)
Quarter: 2012Q1

REPORT INFORMATION
  Report Type: 
  Country: None (occurrence: None)
  Receive Date: 20120323
  Receipt Date: 20120314
  Transmission Date: 20120608
  Serious: Yes (Other)
  Sender: FDA-Public Use
  Company Number: CZ-COVIDIEN/TYCO HEALTHCARE/MALLINCKRODT-T201201123

PATIENT
  Age: 15 Year
  Sex: Male

DRUGS (1)
  1. METHYLIN [Suspect]
     Dosage: UNK

REACTIONS (1)
  - HALLUCINATION, VISUAL [None]
